FAERS Safety Report 8348878-3 (Version None)
Quarter: 2012Q2

REPORT INFORMATION
  Report Type: 
  Country: None (occurrence: None)
  Receive Date: 20120508
  Receipt Date: 20120423
  Transmission Date: 20120825
  Serious: Yes (Other)
  Sender: FDA-Public Use
  Company Number: JPI-P-019967

PATIENT
  Age: 31 Year
  Sex: Male
  Weight: 65.318 kg

DRUGS (3)
  1. XYREM [Suspect]
     Indication: NARCOLEPSY
     Dosage: 9 GM (4.5 GM, 2 IN 1 D), ORAL
     Route: 048
     Dates: start: 20100701
  2. XYREM [Suspect]
     Indication: SOMNOLENCE
     Dosage: 9 GM (4.5 GM, 2 IN 1 D), ORAL
     Route: 048
     Dates: start: 20100701
  3. MOMETASONE FUROATE MONOHYDRATE [Concomitant]

REACTIONS (4)
  - ARNOLD-CHIARI MALFORMATION [None]
  - BRAIN HERNIATION [None]
  - HYDROCEPHALUS [None]
  - SYRINGOMYELIA [None]
